FAERS Safety Report 15972717 (Version 3)
Quarter: 2019Q1

REPORT INFORMATION
  Report Type: Report from Study
  Country: UA (occurrence: UA)
  Receive Date: 20190216
  Receipt Date: 20190307
  Transmission Date: 20190418
  Serious: Yes (Hospitalization)
  Sender: FDA-Public Use
  Company Number: UA-ROCHE-2263759

PATIENT
  Age: 51 Year
  Sex: Female
  Weight: 97.7 kg

DRUGS (8)
  1. CETRINE [Concomitant]
     Route: 048
     Dates: start: 20181203, end: 20181213
  2. ATEZOLIZUMAB. [Suspect]
     Active Substance: ATEZOLIZUMAB
     Indication: RENAL CELL CARCINOMA
     Dosage: DATE OF MOST RECENT DOSE OF BLINDED ATEZOLIZUMAB PRIOR TO AE ONSET ON 10/SEP/2018 AT 10:30, 1200 MG
     Route: 042
     Dates: start: 20171102
  3. EGILOK [Concomitant]
     Active Substance: METOPROLOL TARTRATE
     Route: 048
     Dates: start: 20180801
  4. BETAZONE ULTRA [Concomitant]
     Dosage: 1 OTHER
     Route: 065
     Dates: start: 20181203, end: 20181217
  5. SODIUM THIOSULPHATE [Concomitant]
     Active Substance: SODIUM THIOSULFATE
     Route: 042
     Dates: start: 20181203, end: 20181213
  6. ATOXIL [Concomitant]
     Dosage: 1 OTHER
     Route: 048
     Dates: start: 20181203, end: 20181213
  7. KARNIT-Q [Concomitant]
     Route: 048
     Dates: start: 20181214, end: 20181224
  8. SUPRASTIN [Concomitant]
     Active Substance: CHLOROPYRAMINE HYDROCHLORIDE
     Dosage: 1 AMPULE
     Route: 048
     Dates: start: 20181203, end: 20181213

REACTIONS (1)
  - Psoriasis [Not Recovered/Not Resolved]

NARRATIVE: CASE EVENT DATE: 20190109
